FAERS Safety Report 25896608 (Version 2)
Quarter: 2025Q4

REPORT INFORMATION
  Report Type: Spontaneous
  Country: CN (occurrence: CN)
  Receive Date: 20251008
  Receipt Date: 20251010
  Transmission Date: 20260117
  Serious: Yes (Other)
  Sender: Kenvue
  Company Number: CN-KENVUE-20251000055

PATIENT

DRUGS (8)
  1. CHILDRENS MOTRIN [Suspect]
     Active Substance: IBUPROFEN
     Indication: Hyperpyrexia
     Dosage: 4 MILLILITER, THRICE A DAY
     Route: 048
     Dates: start: 20250913
  2. CHILDRENS MOTRIN [Suspect]
     Active Substance: IBUPROFEN
     Indication: Influenza
     Dosage: 4 MILLILITER, THRICE A DAY
     Route: 048
     Dates: start: 20250918
  3. CHILDRENS MOTRIN [Suspect]
     Active Substance: IBUPROFEN
     Indication: Pyrexia
  4. BALOXAVIR MARBOXIL [Suspect]
     Active Substance: BALOXAVIR MARBOXIL
     Indication: Influenza
     Dosage: 28 MILLIGRAM, ONCE A DAY
     Route: 048
     Dates: start: 20250913
  5. BALOXAVIR MARBOXIL [Suspect]
     Active Substance: BALOXAVIR MARBOXIL
     Indication: Hyperpyrexia
  6. CEFTRIAXONE [Concomitant]
     Active Substance: CEFTRIAXONE
     Indication: Pyrexia
     Dosage: UNK
     Route: 041
     Dates: start: 20250918
  7. VITAMIN C [Concomitant]
     Active Substance: ASCORBIC ACID
     Indication: Pyrexia
     Dosage: UNK
     Route: 041
     Dates: start: 20250918
  8. UNSPECIFIED INGREDIENT [Concomitant]
     Active Substance: UNSPECIFIED INGREDIENT
     Indication: Pyrexia
     Dosage: UNK
     Route: 065
     Dates: start: 20250918

REACTIONS (7)
  - Agranulocytosis [Recovered/Resolved]
  - Lymphocyte count decreased [Recovering/Resolving]
  - Decreased appetite [Recovering/Resolving]
  - Monocyte percentage increased [Recovered/Resolved]
  - Off label use [Unknown]
  - Platelet count decreased [Recovering/Resolving]
  - Asthenia [Recovering/Resolving]

NARRATIVE: CASE EVENT DATE: 20250913
